FAERS Safety Report 10203526 (Version 1)
Quarter: 2014Q2

REPORT INFORMATION
  Report Type: Spontaneous
  Country: CH (occurrence: CH)
  Receive Date: 20140529
  Receipt Date: 20140529
  Transmission Date: 20141212
  Serious: Yes (Other)
  Sender: FDA-Public Use
  Company Number: CH-ROCHE-1408785

PATIENT
  Sex: Male
  Weight: 90 kg

DRUGS (3)
  1. AVASTIN [Suspect]
     Indication: METASTATIC MALIGNANT MELANOMA
     Route: 065
  2. ZELBORAF [Suspect]
     Indication: METASTATIC MALIGNANT MELANOMA
     Route: 048
     Dates: start: 20120611
  3. ZELBORAF [Suspect]
     Dosage: INCREASED DOSE
     Route: 048
     Dates: start: 20131106

REACTIONS (10)
  - Off label use [Unknown]
  - Metastases to peritoneum [Unknown]
  - Pleural effusion [Unknown]
  - Pulmonary fibrosis [Unknown]
  - Granuloma [Unknown]
  - Skin papilloma [Unknown]
  - Photosensitivity reaction [Unknown]
  - Disease progression [Unknown]
  - Abdominal pain [Unknown]
  - Metastases to lymph nodes [Unknown]
